FAERS Safety Report 4399900-0 (Version None)
Quarter: 2004Q3

REPORT INFORMATION
  Report Type: 
  Country: None (occurrence: None)
  Receive Date: 20040716
  Receipt Date: 20040702
  Transmission Date: 20050211
  Serious: Yes (Hospitalization)
  Sender: FDA-Public Use
  Company Number: 04P-167-0265726-00

PATIENT
  Sex: Male

DRUGS (1)
  1. SEVOFLURANE [Suspect]

REACTIONS (3)
  - HAEMATOMA [None]
  - POST PROCEDURAL HAEMORRHAGE [None]
  - SCROTAL SWELLING [None]
